FAERS Safety Report 8775474 (Version 2)
Quarter: 2012Q4

REPORT INFORMATION
  Report Type: 
  Country: JP (occurrence: JP)
  Receive Date: 20120910
  Receipt Date: 20121112
  Transmission Date: 20130627
  Serious: Yes (Hospitalization)
  Sender: FDA-Public Use
  Company Number: JP-UCBSA-064974

PATIENT
  Age: 22 Year
  Sex: Male

DRUGS (3)
  1. E KEPPRA [Suspect]
     Indication: EPILEPSY
     Dosage: UNKNOWN
     Route: 048
  2. CLONAZEPAM [Concomitant]
     Dosage: UNKNOWN
     Route: 048
  3. RISPERIDONE [Concomitant]
     Dosage: UNKNOWN
     Route: 048

REACTIONS (2)
  - Brief psychotic disorder with marked stressors [Recovering/Resolving]
  - Psychomotor hyperactivity [Recovering/Resolving]
